FAERS Safety Report 6404650-2 (Version None)
Quarter: 2009Q4

REPORT INFORMATION
  Report Type: 
  Country: None (occurrence: None)
  Receive Date: 20091016
  Receipt Date: 20091008
  Transmission Date: 20100525
  Serious: Yes (Life-Threatening, Other)
  Sender: FDA-Public Use
  Company Number: PH-ABBOTT-09P-128-0601689-00

PATIENT
  Age: 64 Year
  Sex: Female

DRUGS (1)
  1. SEVOFLURANE [Suspect]
     Indication: ANAESTHESIA
     Route: 055

REACTIONS (4)
  - COMA [None]
  - DYSPNOEA [None]
  - HYPERSENSITIVITY [None]
  - TRACHEAL OEDEMA [None]
